FAERS Safety Report 12185323 (Version 3)
Quarter: 2016Q2

REPORT INFORMATION
  Report Type: Report from Study
  Country: US (occurrence: US)
  Receive Date: 20160316
  Receipt Date: 20160527
  Transmission Date: 20160815
  Serious: Yes (Hospitalization)
  Sender: FDA-Public Use
  Company Number: US-ACTELION-A-US2016-130256

PATIENT
  Age: 57 Year
  Sex: Female

DRUGS (3)
  1. VELETRI [Suspect]
     Active Substance: EPOPROSTENOL
     Indication: PULMONARY HYPERTENSION
     Dosage: 60 NG/KG, PER MIN
     Route: 042
     Dates: start: 20110919
  2. RIOCIGUAT [Concomitant]
     Active Substance: RIOCIGUAT
  3. OPSUMIT [Suspect]
     Active Substance: MACITENTAN
     Indication: PULMONARY HYPERTENSION
     Dosage: 10 MG, QD
     Route: 048
     Dates: start: 20140203

REACTIONS (18)
  - Unevaluable event [Unknown]
  - Dyspnoea [Unknown]
  - Catheter site infection [Unknown]
  - Weight decreased [Unknown]
  - Arthritis [Unknown]
  - Sluggishness [Unknown]
  - Erythema [Unknown]
  - Catheter site related reaction [Unknown]
  - Clostridium difficile infection [Unknown]
  - Diarrhoea [Unknown]
  - Musculoskeletal pain [Unknown]
  - Device related infection [Unknown]
  - Neck pain [Unknown]
  - Flushing [Unknown]
  - Decreased appetite [Unknown]
  - Dehydration [Unknown]
  - Pain in jaw [Unknown]
  - Oedema peripheral [Unknown]
